FAERS Safety Report 18799015 (Version 2)
Quarter: 2021Q1

REPORT INFORMATION
  Report Type: Spontaneous
  Country: JP (occurrence: JP)
  Receive Date: 20210128
  Receipt Date: 20210208
  Transmission Date: 20210419
  Serious: Yes (Hospitalization, Other)
  Sender: FDA-Public Use
  Company Number: JP-GLAXOSMITHKLINE-JP2021016418

PATIENT
  Age: 83 Year
  Sex: Male

DRUGS (1)
  1. IMIGRAN?T [Suspect]
     Active Substance: SUMATRIPTAN SUCCINATE
     Indication: HEADACHE
     Dosage: UNK, BID
     Route: 048

REACTIONS (2)
  - Bile duct stone [Unknown]
  - Product use issue [Unknown]
